FAERS Safety Report 16783132 (Version 1)
Quarter: 2019Q3

REPORT INFORMATION
  Report Type: Spontaneous
  Country: CA (occurrence: CA)
  Receive Date: 20190907
  Receipt Date: 20190907
  Transmission Date: 20191005
  Serious: Yes (Other)
  Sender: FDA-Public Use
  Company Number: CA-AUROBINDO-AUR-APL-2019-057875

PATIENT

DRUGS (4)
  1. ESTRADOT [Suspect]
     Active Substance: ESTRADIOL
     Dosage: 37.5 MICROGRAM
     Route: 065
  2. RAMIPRIL. [Suspect]
     Active Substance: RAMIPRIL
     Indication: BLOOD PRESSURE ABNORMAL
     Dosage: 2.5 MILLIGRAM, TWO TIMES A DAY
     Route: 048
  3. VENLAFAXINE [Concomitant]
     Active Substance: VENLAFAXINE HYDROCHLORIDE
     Indication: ANXIETY
     Dosage: 75 MILLIGRAM, DAILY
     Route: 048
  4. ESTRADOT [Suspect]
     Active Substance: ESTRADIOL
     Indication: BLOOD OESTROGEN ABNORMAL
     Dosage: 25 MILLIGRAM, DAILY
     Route: 061

REACTIONS (3)
  - Hot flush [Unknown]
  - Intentional self-injury [Unknown]
  - Drug ineffective [Unknown]
